FAERS Safety Report 11730480 (Version 2)
Quarter: 2015Q4

REPORT INFORMATION
  Report Type: Spontaneous
  Country: IN (occurrence: IN)
  Receive Date: 20151112
  Receipt Date: 20151223
  Transmission Date: 20160304
  Serious: Yes (Hospitalization, Other)
  Sender: FDA-Public Use
  Company Number: IN-GILEAD-2015-0182208

PATIENT
  Age: 62 Year
  Sex: Female

DRUGS (2)
  1. SOVALDI [Suspect]
     Active Substance: SOFOSBUVIR
     Indication: CHRONIC HEPATITIS C
     Dosage: 400 MG, QD
     Route: 048
     Dates: start: 201505, end: 201510
  2. RIBAVIRIN. [Concomitant]
     Active Substance: RIBAVIRIN
     Indication: CHRONIC HEPATITIS C
     Dosage: 800 MG, QD
     Route: 048

REACTIONS (4)
  - Product shape issue [Recovered/Resolved]
  - Poor quality drug administered [Recovered/Resolved]
  - Product packaging quantity issue [Recovered/Resolved]
  - Haematemesis [Unknown]
